FAERS Safety Report 24022597 (Version 4)
Quarter: 2024Q3

REPORT INFORMATION
  Report Type: Report from Study
  Country: CN (occurrence: CN)
  Receive Date: 20240627
  Receipt Date: 20240710
  Transmission Date: 20241016
  Serious: No
  Sender: ROCHE
  Company Number: CN-ROCHE-3210085

PATIENT
  Age: 58 Year
  Sex: Male
  Weight: 75.0 kg

DRUGS (1)
  1. ALECENSA [Suspect]
     Active Substance: ALECTINIB HYDROCHLORIDE
     Indication: Non-small cell lung cancer metastatic
     Dosage: 224CAPSULES (56CAPSULE 4BOX)
     Route: 048
     Dates: start: 20221007

REACTIONS (8)
  - Myalgia [Recovered/Resolved]
  - Sunburn [Recovered/Resolved]
  - Transaminases increased [Recovered/Resolved]
  - Nail disorder [Not Recovered/Not Resolved]
  - Hyperhidrosis [Not Recovered/Not Resolved]
  - Night sweats [Not Recovered/Not Resolved]
  - Insomnia [Not Recovered/Not Resolved]
  - Taste disorder [Not Recovered/Not Resolved]

NARRATIVE: CASE EVENT DATE: 20221007
